FAERS Safety Report 10684671 (Version 1)
Quarter: 2014Q4

REPORT INFORMATION
  Report Type: Spontaneous
  Country: FR (occurrence: FR)
  Receive Date: 20141231
  Receipt Date: 20141231
  Transmission Date: 20150529
  Serious: Yes (Hospitalization)
  Sender: FDA-Public Use
  Company Number: FR-009507513-1412FRA012583

PATIENT
  Age: 36 Year
  Sex: Female

DRUGS (1)
  1. NEXPLANON [Suspect]
     Active Substance: ETONOGESTREL
     Dosage: STRENGTH: 68 MG, DOSE AND FREQUENCY: UNKNOWN
     Route: 058
     Dates: start: 20141205, end: 20141207

REACTIONS (4)
  - Implant site reaction [Recovered/Resolved]
  - Oedema [Recovered/Resolved]
  - Application site discharge [Recovered/Resolved]
  - Erythema [Recovered/Resolved]

NARRATIVE: CASE EVENT DATE: 20141206
